FAERS Safety Report 4595740-8 (Version None)
Quarter: 2005Q1

REPORT INFORMATION
  Report Type: 
  Country: None (occurrence: None)
  Receive Date: 20050224
  Receipt Date: 20050214
  Transmission Date: 20050727
  Serious: Yes (Disabling)
  Sender: FDA-Public Use
  Company Number: 2004US001513

PATIENT
  Age: 5 Year
  Sex: Female
  Weight: 19.6 kg

DRUGS (8)
  1. PROGRAF [Suspect]
     Indication: PROPHYLAXIS AGAINST TRANSPLANT REJECTION
     Dosage: 0.80 MG, BID, ORAL
     Route: 048
  2. SIROLIMUS (SIROLIMUS) [Suspect]
     Indication: PROPHYLAXIS AGAINST TRANSPLANT REJECTION
     Dosage: SEE IMAGE
  3. ZITHROMAX [Suspect]
     Indication: PNEUMONIA
  4. FERINSOL (FERROUS SULFATE) [Concomitant]
  5. LIPITOR [Concomitant]
  6. WARFARIN SODIUM [Concomitant]
  7. PREDNISONE [Concomitant]
  8. SODIUM PHOSPHATE (SODIUM PHOSPHATE (32 P)) [Concomitant]

REACTIONS (5)
  - BLOOD CREATININE INCREASED [None]
  - DRUG INTERACTION [None]
  - DRUG LEVEL INCREASED [None]
  - NEUROTOXICITY [None]
  - PNEUMONIA [None]
